FAERS Safety Report 9942385 (Version 2)
Quarter: 2014Q1

REPORT INFORMATION
  Report Type: Spontaneous
  Country: US (occurrence: US)
  Receive Date: 20140303
  Receipt Date: 20140327
  Transmission Date: 20141002
  Serious: No
  Sender: FDA-Public Use
  Company Number: US-009507513-1402USA010547

PATIENT
  Sex: Female

DRUGS (8)
  1. DULERA [Suspect]
     Indication: ASTHMA
     Dosage: UNK
     Route: 055
  2. ACCUPRIL [Concomitant]
  3. ALBUTEROL [Concomitant]
     Dosage: BY NEBULIZER
  4. VENTOLIN HFA [Concomitant]
  5. ASTEPRO [Concomitant]
  6. VERAMYST [Concomitant]
  7. EPIPEN [Concomitant]
  8. LEVOCETIRIZINE [Concomitant]

REACTIONS (6)
  - Feeling jittery [Recovered/Resolved]
  - Palpitations [Recovered/Resolved]
  - Headache [Recovered/Resolved]
  - Dyspnoea [Recovered/Resolved]
  - Eye pain [Recovered/Resolved]
  - Hypertension [Recovered/Resolved]
